FAERS Safety Report 19845862 (Version 1)
Quarter: 2021Q3

REPORT INFORMATION
  Report Type: Report from Study
  Country: US (occurrence: US)
  Receive Date: 20210916
  Receipt Date: 20210916
  Transmission Date: 20211014
  Serious: Yes (Hospitalization, Other)
  Sender: FDA-Public Use
  Company Number: US-GILEAD-2021-0544497

PATIENT
  Age: 63 Year
  Sex: Male

DRUGS (1)
  1. SOFOSBUVIR W/VELPATASVIR [Suspect]
     Active Substance: SOFOSBUVIR\VELPATASVIR
     Indication: HEPATITIS C
     Dosage: 1 DOSAGE FORM, QD
     Route: 048
     Dates: start: 20210702

REACTIONS (5)
  - Hepatitis C [Unknown]
  - Hepatic cancer [Unknown]
  - Fluid retention [Not Recovered/Not Resolved]
  - Weight decreased [Not Recovered/Not Resolved]
  - Colon cancer [Unknown]

NARRATIVE: CASE EVENT DATE: 20210702
